FAERS Safety Report 8418740-6 (Version None)
Quarter: 2012Q2

REPORT INFORMATION
  Report Type: 
  Country: None (occurrence: None)
  Receive Date: 20120607
  Receipt Date: 20120531
  Transmission Date: 20120825
  Serious: Yes (Hospitalization)
  Sender: FDA-Public Use
  Company Number: US-UCBSA-054490

PATIENT
  Age: 54 Year
  Sex: Female

DRUGS (2)
  1. CIMZIA [Suspect]
     Indication: CROHN'S DISEASE
     Dosage: 2 SYRINGS (200 MG EA) SUBQ AT WEEK 0,2 +4, THEN 400 MG EVERY 4 WEEKS
     Route: 058
     Dates: start: 20120409
  2. CIMZIA [Suspect]
     Route: 058
     Dates: start: 20120214, end: 20120101

REACTIONS (7)
  - ABDOMINAL DISCOMFORT [None]
  - INFECTION [None]
  - LETHARGY [None]
  - MALAISE [None]
  - INSOMNIA [None]
  - HOSPITALISATION [None]
  - VOMITING [None]
